FAERS Safety Report 8119340-8 (Version None)
Quarter: 2012Q1

REPORT INFORMATION
  Report Type: 
  Country: None (occurrence: None)
  Receive Date: 20120207
  Receipt Date: 20120130
  Transmission Date: 20120608
  Serious: Yes (Other)
  Sender: FDA-Public Use
  Company Number: US-JNJFOC-20120200580

PATIENT
  Age: 49 Year
  Sex: Female

DRUGS (1)
  1. LISTERINE TOTAL CARE PLUS WHITENING [Suspect]
     Indication: DENTAL DISORDER PROPHYLAXIS
     Dosage: LITTLE BIT FROM THE CAP FOR THREE DAYS
     Route: 048
     Dates: start: 20111201, end: 20111201

REACTIONS (1)
  - APHTHOUS STOMATITIS [None]
